FAERS Safety Report 5535707-6 (Version None)
Quarter: 2007Q4

REPORT INFORMATION
  Report Type: 
  Country: None (occurrence: None)
  Receive Date: 20071206
  Receipt Date: 20071203
  Transmission Date: 20080405
  Serious: Yes (Hospitalization, Other)
  Sender: FDA-Public Use
  Company Number: FR-WYE-H01550007

PATIENT
  Sex: Male

DRUGS (4)
  1. CORDARONE [Suspect]
     Route: 048
     Dates: start: 20070206
  2. ALLOPURINOL [Concomitant]
     Dosage: DOSE AND FREQUENCY NOT SPECIFIED
     Route: 048
  3. PREVISCAN [Interacting]
     Route: 048
     Dates: end: 20070216
  4. PREVISCAN [Interacting]
     Route: 048
     Dates: start: 20070217

REACTIONS (3)
  - BRONCHITIS [None]
  - DRUG INTERACTION [None]
  - INTERNATIONAL NORMALISED RATIO INCREASED [None]
